FAERS Safety Report 12449189 (Version 2)
Quarter: 2016Q3

REPORT INFORMATION
  Report Type: Report from Study
  Country: US (occurrence: US)
  Receive Date: 20160608
  Receipt Date: 20160906
  Transmission Date: 20161109
  Serious: No
  Sender: FDA-Public Use
  Company Number: GXBR2016US001967

PATIENT
  Sex: Male

DRUGS (1)
  1. OMNITROPE [Suspect]
     Active Substance: SOMATROPIN
     Indication: DWARFISM
     Dosage: 2.3 MG, 6 DAYS A WEEK
     Route: 065
     Dates: start: 201411

REACTIONS (1)
  - Incorrect dose administered by device [Not Recovered/Not Resolved]
